FAERS Safety Report 5902803-0 (Version None)
Quarter: 2008Q3

REPORT INFORMATION
  Report Type: 
  Country: None (occurrence: None)
  Receive Date: 20080929
  Receipt Date: 20080929
  Transmission Date: 20090109
  Serious: Yes (Life-Threatening, Hospitalization, Disabling)
  Sender: FDA-Public Use
  Company Number: None

PATIENT
  Age: 31 Year
  Sex: Male
  Weight: 124.7392 kg

DRUGS (1)
  1. METHADONE HCL [Suspect]
     Indication: DRUG DEPENDENCE
     Dosage: 55MG ONCE DAILY PO
     Route: 048
     Dates: start: 20061122, end: 20080926

REACTIONS (16)
  - AMNESIA [None]
  - ASPIRATION [None]
  - ASTHENIA [None]
  - COMA [None]
  - DYSSTASIA [None]
  - HEART RATE INCREASED [None]
  - HEPATIC FAILURE [None]
  - HYPOTENSION [None]
  - LIVER INJURY [None]
  - OVERDOSE [None]
  - PULMONARY EMBOLISM [None]
  - RENAL FAILURE [None]
  - RESPIRATORY DISORDER [None]
  - SKIN DISCOLOURATION [None]
  - SPEECH DISORDER [None]
  - UNRESPONSIVE TO STIMULI [None]
